FAERS Safety Report 17989016 (Version 1)
Quarter: 2020Q3

REPORT INFORMATION
  Report Type: Spontaneous
  Country: US (occurrence: US)
  Receive Date: 20200707
  Receipt Date: 20200707
  Transmission Date: 20201103
  Serious: Yes (Other)
  Sender: FDA-Public Use
  Company Number: None

PATIENT
  Age: 32 Year
  Sex: Female
  Weight: 67.5 kg

DRUGS (7)
  1. ZYRTEC [Concomitant]
     Active Substance: CETIRIZINE HYDROCHLORIDE
  2. IRON [Concomitant]
     Active Substance: IRON
  3. IBUPROFEN. [Concomitant]
     Active Substance: IBUPROFEN
  4. BUPRENORPHINE AND NALOXONE SUBLINGUAL FILM [Suspect]
     Active Substance: BUPRENORPHINE HYDROCHLORIDE\NALOXONE HYDROCHLORIDE
     Indication: DRUG DEPENDENCE
     Dosage: ?          QUANTITY:2 SUBLINGUAL FILM;?
     Route: 060
  5. MELATONIN PRN [Concomitant]
  6. TYLENOL [Concomitant]
     Active Substance: ACETAMINOPHEN
  7. BENADRYL [Concomitant]
     Active Substance: DIPHENHYDRAMINE HYDROCHLORIDE

REACTIONS (17)
  - Nausea [None]
  - Stomatitis [None]
  - Malaise [None]
  - Dyspnoea [None]
  - Withdrawal syndrome [None]
  - Vomiting [None]
  - Burning sensation [None]
  - Pruritus [None]
  - Flushing [None]
  - Skin burning sensation [None]
  - Chest pain [None]
  - Pain [None]
  - Hyperhidrosis [None]
  - Oropharyngeal pain [None]
  - Product substitution issue [None]
  - Headache [None]
  - Ear pain [None]

NARRATIVE: CASE EVENT DATE: 20200407
